FAERS Safety Report 16379473 (Version 1)
Quarter: 2019Q2

REPORT INFORMATION
  Report Type: Spontaneous
  Country: SE (occurrence: SE)
  Receive Date: 20190531
  Receipt Date: 20190531
  Transmission Date: 20190711
  Serious: Yes (Other)
  Sender: FDA-Public Use
  Company Number: SE-MYLANLABS-2019M1050867

PATIENT
  Age: 70 Year
  Sex: Female

DRUGS (9)
  1. HUMIRA [Concomitant]
     Active Substance: ADALIMUMAB
  2. LEVAXIN [Concomitant]
     Active Substance: LEVOTHYROXINE SODIUM
  3. METOPROLOL. [Concomitant]
     Active Substance: METOPROLOL
  4. AZATHIOPRINE. [Suspect]
     Active Substance: AZATHIOPRINE
     Indication: PRODUCT USED FOR UNKNOWN INDICATION
     Dosage: UNK
     Route: 048
     Dates: start: 20180911, end: 20181004
  5. OMEPRAZOLE. [Concomitant]
     Active Substance: OMEPRAZOLE
  6. REPATHA [Concomitant]
     Active Substance: EVOLOCUMAB
  7. PREDNISOLONE. [Concomitant]
     Active Substance: PREDNISOLONE
  8. FOLIC ACID W/IRON/VITAMINS NOS [Concomitant]
  9. TROMBYL [Concomitant]
     Active Substance: ASPIRIN

REACTIONS (2)
  - Abdominal pain [Recovered/Resolved]
  - Amylase increased [Recovered/Resolved]

NARRATIVE: CASE EVENT DATE: 20181004
